FAERS Safety Report 9970762 (Version 1)
Quarter: 2014Q1

REPORT INFORMATION
  Report Type: Report from Study
  Country: US (occurrence: US)
  Receive Date: 20140306
  Receipt Date: 20140306
  Transmission Date: 20141002
  Serious: No
  Sender: FDA-Public Use
  Company Number: US-ABBVIE-13P-163-1147745-00

PATIENT
  Sex: Female

DRUGS (7)
  1. HUMIRA [Suspect]
     Indication: RHEUMATOID ARTHRITIS
  2. HUMIRA [Suspect]
  3. HUMIRA [Suspect]
     Dosage: WEEKLY
  4. HUMIRA [Suspect]
     Dosage: EVERY 10 DAYS
  5. HUMIRA [Suspect]
     Dosage: WEEKLY
     Dates: start: 201303
  6. STEROIDS [Concomitant]
     Indication: PRODUCT USED FOR UNKNOWN INDICATION
  7. STEROIDS [Concomitant]

REACTIONS (2)
  - Screaming [Unknown]
  - Device malfunction [Unknown]
